FAERS Safety Report 20989650 (Version 1)
Quarter: 2022Q2

REPORT INFORMATION
  Report Type: Report from Study
  Country: RU (occurrence: RU)
  Receive Date: 20220621
  Receipt Date: 20220621
  Transmission Date: 20220721
  Serious: Yes (Hospitalization, Other)
  Sender: FDA-Public Use
  Company Number: RU-BRISTOL-MYERS SQUIBB COMPANY-2022-058474

PATIENT
  Age: 74 Year
  Sex: Male
  Weight: 63 kg

DRUGS (4)
  1. IPILIMUMAB [Suspect]
     Active Substance: IPILIMUMAB
     Indication: Non-small cell lung cancer
     Route: 042
     Dates: start: 20210921, end: 20220318
  2. CARBOPLATIN [Suspect]
     Active Substance: CARBOPLATIN
     Indication: Non-small cell lung cancer
     Dosage: ON 29-JUL-2021, RECEVIED AT A DOSE OF 170 MG
     Route: 065
     Dates: start: 20210624, end: 20210729
  3. PACLITAXEL [Suspect]
     Active Substance: PACLITAXEL
     Indication: Non-small cell lung cancer
     Dosage: MOST RECENT DOSE RECEVIED ON 29-JUL-2021
     Route: 065
     Dates: start: 20210624, end: 20210729
  4. L-TYROXINE [Concomitant]
     Indication: Product used for unknown indication
     Dosage: EVERY 24 HOURS?ONGOING
     Route: 048
     Dates: start: 20210913

REACTIONS (1)
  - Autoimmune lung disease [Recovered/Resolved]

NARRATIVE: CASE EVENT DATE: 20220401
